FAERS Safety Report 23936295 (Version 3)
Quarter: 2024Q3

REPORT INFORMATION
  Report Type: Spontaneous
  Country: CA (occurrence: CA)
  Receive Date: 20240604
  Receipt Date: 20240807
  Transmission Date: 20241016
  Serious: No
  Sender: CELLTRION
  Company Number: CA-PFIZER INC-202400181433

PATIENT

DRUGS (2)
  1. INFLECTRA [Suspect]
     Active Substance: INFLIXIMAB-DYYB
     Indication: Ankylosing spondylitis
     Dosage: 500 MG EVERY 9 WEEKS
     Route: 042
     Dates: start: 20240411
  2. INFLECTRA [Suspect]
     Active Substance: INFLIXIMAB-DYYB
     Dosage: 500 MG 11 WEEKS AND 6 DAYS (EVERY 9 WEEKS)
     Route: 042
     Dates: start: 20240703

REACTIONS (1)
  - Hypertension [Unknown]
